FAERS Safety Report 9297675 (Version 3)
Quarter: 2013Q3

REPORT INFORMATION
  Report Type: Spontaneous
  Country: US (occurrence: US)
  Receive Date: 20130520
  Receipt Date: 20130813
  Transmission Date: 20140515
  Serious: No
  Sender: FDA-Public Use
  Company Number: US-PFIZER INC-2013151898

PATIENT
  Age: 63 Year
  Sex: Male
  Weight: 117 kg

DRUGS (18)
  1. INLYTA [Suspect]
     Indication: METASTATIC RENAL CELL CARCINOMA
     Dosage: 5 MG, 2X/DAY
     Dates: start: 201212
  2. INLYTA [Suspect]
     Dosage: 7 MG, 2X/DAY
     Dates: start: 201301
  3. INLYTA [Suspect]
     Dosage: 10 MG, 2X/DAY
  4. INLYTA [Suspect]
     Dosage: 15 MG, TOTAL DAILY
  5. INLYTA [Suspect]
     Dosage: 5 MG, TWICE DAILY (FOR TWO AND A HALF WEEKS)
     Route: 048
  6. INLYTA [Suspect]
     Dosage: 6 MG, TWICE DAILY (1 MG TABLET, INSTRUCTIONS: TAKE WITH OTHER AXITINIB TO EQUAL 6 MG TWICE DAILY)
     Route: 048
     Dates: start: 201212, end: 20130514
  7. INLYTA [Suspect]
     Dosage: 5 MG, 2X/DAY
     Route: 048
     Dates: start: 20130522
  8. AMLODIPINE BESILATE [Concomitant]
     Dosage: 10 MG, 1X/DAY
     Route: 048
  9. ASPIR [Concomitant]
     Dosage: 81 MG, 1X/DAY
     Route: 048
  10. BYSTOLIC [Concomitant]
     Dosage: 10 MG, 1X/DAY
     Route: 048
  11. LANTUS [Concomitant]
     Dosage: 1 UNIT, 1X/DAY
     Route: 058
  12. LANTUS [Concomitant]
     Dosage: 1 U, AS DIRECTED (INSTRUCTIONS: 50 UNITS)
     Route: 058
  13. LISINOPRIL [Concomitant]
     Dosage: 40 MG, 1X/DAY
     Route: 048
  14. NOVOLOG [Concomitant]
     Dosage: 1 DF, AS DIRECTED (INSTRUCTIONS: S/S PER PRIM MD)
     Route: 058
  15. ONDANSETRON HYDROCHLORIDE [Concomitant]
     Indication: NAUSEA
     Dosage: 8 MG, AS NEEDED (Q8H PRN)
     Route: 048
  16. VICODIN [Concomitant]
     Indication: PAIN
     Dosage: 5 MG/500 MG, AS NEEDED (Q4H PRN)
     Route: 048
  17. PROCHLORPERAZINE MALEATE [Concomitant]
     Indication: NAUSEA
     Dosage: 10 MG, AS NEEDED (Q6H PRN )
     Route: 048
  18. GABAPENTIN [Concomitant]
     Dosage: 100 MG, UNK
     Route: 048

REACTIONS (24)
  - Palmar-plantar erythrodysaesthesia syndrome [Unknown]
  - Pain in extremity [Unknown]
  - Pain in extremity [Unknown]
  - Erythema [Recovered/Resolved]
  - Hypertension [Recovering/Resolving]
  - Nausea [Recovered/Resolved]
  - Fatigue [Not Recovered/Not Resolved]
  - Stomatitis [Recovered/Resolved]
  - Hypothyroidism [Unknown]
  - Chest pain [Unknown]
  - Musculoskeletal chest pain [Unknown]
  - Cough [Unknown]
  - Dyspnoea exertional [Unknown]
  - Weight decreased [Unknown]
  - Dry skin [Unknown]
  - Decreased appetite [Unknown]
  - Vomiting [Unknown]
  - Diarrhoea [Not Recovered/Not Resolved]
  - Nocturia [Unknown]
  - Insomnia [Unknown]
  - Joint stiffness [Not Recovered/Not Resolved]
  - Muscle spasms [Not Recovered/Not Resolved]
  - Anaemia [Recovered/Resolved]
  - Proteinuria [Unknown]
